FAERS Safety Report 9777285 (Version 4)
Quarter: 2014Q1

REPORT INFORMATION
  Report Type: Spontaneous
  Country: JP (occurrence: JP)
  Receive Date: 20131221
  Receipt Date: 20140306
  Transmission Date: 20141002
  Serious: Yes (Hospitalization)
  Sender: FDA-Public Use
  Company Number: JP-UCBSA-106227

PATIENT
  Age: 75 Year
  Sex: Female

DRUGS (8)
  1. CIMZIA [Suspect]
     Indication: RHEUMATOID ARTHRITIS
     Dosage: 200MG SYRINGE, DOSE: 200 MG
     Route: 058
     Dates: start: 20130507, end: 20131128
  2. CELECOX [Concomitant]
     Dosage: 400MG DAILY
     Route: 048
  3. TRAMCET [Concomitant]
     Dosage: 1DF DAILY
     Route: 048
     Dates: start: 20131128
  4. METHYLCOBAL [Concomitant]
     Dosage: 1500MCG DAILY
     Route: 048
  5. PNEUMOCOCCAL VACCINE [Concomitant]
     Dosage: UNKNOWN DOSE
     Dates: start: 2013
  6. GASTER D [Concomitant]
     Dosage: 20MG DAILY
     Route: 048
  7. TERNELIN [Concomitant]
     Dosage: 3MG DAILY
     Route: 048
  8. AMLODIPINE [Concomitant]
     Dosage: 5MG DAILY
     Route: 048
     Dates: start: 20131017

REACTIONS (3)
  - Pneumonia [Recovered/Resolved]
  - Pulmonary oedema [Recovered/Resolved]
  - Dehydration [Recovered/Resolved]
